FAERS Safety Report 17267738 (Version 2)
Quarter: 2020Q1

REPORT INFORMATION
  Report Type: Spontaneous
  Country: US (occurrence: US)
  Receive Date: 20200114
  Receipt Date: 20200214
  Transmission Date: 20200409
  Serious: No
  Sender: FDA-Public Use
  Company Number: US-PFIZER INC-2020015099

PATIENT
  Age: 74 Year
  Sex: Male
  Weight: 65.77 kg

DRUGS (1)
  1. DEPO-TESTOSTERONE [Suspect]
     Active Substance: TESTOSTERONE CYPIONATE
     Indication: BLOOD TESTOSTERONE ABNORMAL
     Dosage: UNK(1.5ML TO 2ML EVERY 4 DAYS, INJECTION )

REACTIONS (5)
  - Poor quality product administered [Unknown]
  - Pain [Unknown]
  - Drug ineffective [Not Recovered/Not Resolved]
  - Product physical issue [Unknown]
  - Bone pain [Unknown]

NARRATIVE: CASE EVENT DATE: 201912
